FAERS Safety Report 5137129-9 (Version None)
Quarter: 2006Q4

REPORT INFORMATION
  Report Type: 
  Country: None (occurrence: None)
  Receive Date: 20061030
  Receipt Date: 20050624
  Transmission Date: 20070319
  Serious: Yes (Other)
  Sender: FDA-Public Use
  Company Number: US-GLAXOSMITHKLINE-A0564127A

PATIENT
  Age: 6 Year
  Sex: Male
  Weight: 23.2 kg

DRUGS (5)
  1. ADVAIR HFA [Suspect]
     Indication: ASTHMA
     Dosage: 1PUFF TWICE PER DAY
     Route: 055
     Dates: start: 20050419
  2. ALLEGRA [Concomitant]
     Indication: MULTIPLE ALLERGIES
     Dosage: 30MG TWICE PER DAY
     Route: 048
     Dates: start: 20050201
  3. ALBUTEROL [Concomitant]
     Indication: ASTHMA
  4. ZANTAC [Concomitant]
     Dosage: 150MG TWICE PER DAY
     Route: 048
  5. RHINOCORT SPRAY [Concomitant]
     Indication: NASAL CONGESTION
     Dates: start: 20050701

REACTIONS (5)
  - AGGRESSION [None]
  - AGITATION [None]
  - DIZZINESS [None]
  - INSOMNIA [None]
  - NERVOUSNESS [None]
